FAERS Safety Report 17743567 (Version 1)
Quarter: 2020Q2

REPORT INFORMATION
  Report Type: Report from Study
  Country: IT (occurrence: IT)
  Receive Date: 20200504
  Receipt Date: 20200504
  Transmission Date: 20200714
  Serious: Yes (Hospitalization)
  Sender: FDA-Public Use
  Company Number: IT-MYLANLABS-2020M1044084

PATIENT
  Age: 77 Year
  Sex: Male

DRUGS (11)
  1. FERLIXIT [Concomitant]
     Active Substance: SODIUM FERRIC GLUCONATE COMPLEX
     Dosage: UNK
  2. SEQUACOR [Concomitant]
     Active Substance: BISOPROLOL
     Dosage: UNK
  3. FONDAPARINUX [Suspect]
     Active Substance: FONDAPARINUX
     Indication: ANTICOAGULANT THERAPY
     Dosage: 1 DOSAGE FORM, QD (1.5/0.3 MG/ML)
     Route: 058
     Dates: start: 20190101, end: 20191124
  4. TORVAST [Concomitant]
     Active Substance: ATORVASTATIN
     Dosage: UNK
  5. BINOCRIT [Concomitant]
     Active Substance: ERYTHROPOIETIN
     Dosage: UNK
  6. TRAJENTA [Concomitant]
     Active Substance: LINAGLIPTIN
     Dosage: UNK
  7. CALCITRIOL. [Concomitant]
     Active Substance: CALCITRIOL
     Dosage: UNK
  8. ZYLORIC [Concomitant]
     Active Substance: ALLOPURINOL
     Dosage: UNK
  9. NEXIUM [Concomitant]
     Active Substance: ESOMEPRAZOLE MAGNESIUM
     Dosage: UNK
  10. CACIT                              /00944201/ [Concomitant]
     Active Substance: CALCIUM CARBONATE\CHOLECALCIFEROL
     Dosage: UNK
  11. LANTUS [Concomitant]
     Active Substance: INSULIN GLARGINE
     Dosage: UNK

REACTIONS (2)
  - Haematuria [Unknown]
  - Product use issue [Unknown]

NARRATIVE: CASE EVENT DATE: 20191124
